FAERS Safety Report 21553335 (Version 1)
Quarter: 2022Q4

REPORT INFORMATION
  Report Type: Spontaneous
  Country: US (occurrence: US)
  Receive Date: 20221104
  Receipt Date: 20221104
  Transmission Date: 20230113
  Serious: Yes (Death, Other)
  Sender: FDA-Public Use
  Company Number: US-BRISTOL-MYERS SQUIBB COMPANY-2022-132263

PATIENT
  Age: 41 Year
  Sex: Female
  Weight: 61.69 kg

DRUGS (3)
  1. ABRAXANE [Suspect]
     Active Substance: PACLITAXEL
     Indication: Breast cancer
     Dosage: EVERY 28 DAYS
     Route: 042
     Dates: start: 20211101
  2. HALAVEN [Concomitant]
     Active Substance: ERIBULIN MESYLATE
     Indication: Product used for unknown indication
     Route: 065
  3. FASLODEX [Concomitant]
     Active Substance: FULVESTRANT
     Indication: Product used for unknown indication
     Route: 065

REACTIONS (2)
  - Breast cancer [Fatal]
  - Off label use [Unknown]

NARRATIVE: CASE EVENT DATE: 20211101
